FAERS Safety Report 9457781 (Version 1)
Quarter: 2013Q3

REPORT INFORMATION
  Report Type: Report from Study
  Country: NL (occurrence: NL)
  Receive Date: 20130814
  Receipt Date: 20130814
  Transmission Date: 20140515
  Serious: Yes (Hospitalization, Other)
  Sender: FDA-Public Use
  Company Number: PHHY2013NL052412

PATIENT
  Sex: Male

DRUGS (8)
  1. ZOMETA [Suspect]
     Indication: METASTASES TO BONE
     Dosage: 4 MG, PER 100 ML; 1X PER 6 WEEKS
     Route: 042
  2. ZOMETA [Suspect]
     Indication: BONE PAIN
     Dosage: 4 MG, PER 100 ML; 1X PER 6 WEEKS
     Route: 042
     Dates: start: 20120507
  3. ZOMETA [Suspect]
     Dosage: 4 MG, PER 100 ML; 1X PER 6 WEEKS
     Route: 042
     Dates: start: 20130409
  4. ZOMETA [Suspect]
     Dosage: 4 MG, PER 100 ML; 1X PER 6 WEEKS
     Route: 042
     Dates: start: 20130524
  5. ZOMETA [Suspect]
     Dosage: 4 MG, PER 100 ML; 1X PER 6 WEEKS
     Route: 042
     Dates: start: 20130705
  6. ZOMETA [Suspect]
     Dosage: 4 MG, PER 100 ML; 1X PER 6 WEEKS
     Route: 042
     Dates: start: 20130812
  7. FENTANYL [Concomitant]
     Dosage: 50 UG, Q72H
     Route: 062
  8. ACTIQ [Concomitant]
     Dosage: 200 UG, PRN (WITH A MAXIMUM OF 4 PER DAY)

REACTIONS (6)
  - Bone pain [Recovering/Resolving]
  - Abdominal pain [Recovering/Resolving]
  - Mesenteric neoplasm [Unknown]
  - Metastases to bone [Recovering/Resolving]
  - Malignant neoplasm progression [Recovering/Resolving]
  - Pain [Recovering/Resolving]
